FAERS Safety Report 7062749-4 (Version None)
Quarter: 2010Q4

REPORT INFORMATION
  Report Type: 
  Country: None (occurrence: None)
  Receive Date: 20101026
  Receipt Date: 20100112
  Transmission Date: 20110411
  Serious: No
  Sender: FDA-Public Use
  Company Number: US-PFIZER INC-2010004757

PATIENT
  Sex: Male

DRUGS (4)
  1. LIPITOR [Suspect]
     Dosage: UNK
  2. DILTIAZEM HCL [Suspect]
     Dosage: UNK
  3. VALSARTAN [Suspect]
     Dosage: UNK
  4. WARFARIN SODIUM [Suspect]
     Dosage: UNK

REACTIONS (1)
  - MUSCLE SPASMS [None]
